FAERS Safety Report 7600413-0 (Version None)
Quarter: 2011Q3

REPORT INFORMATION
  Report Type: 
  Country: None (occurrence: None)
  Receive Date: 20110706
  Receipt Date: 20110706
  Transmission Date: 20111222
  Serious: Yes (Other)
  Sender: FDA-Public Use
  Company Number: None

PATIENT
  Age: 60 Year
  Sex: Male
  Weight: 93.8946 kg

DRUGS (1)
  1. DIPRIVAN [Suspect]
     Indication: ANAESTHESIA PROCEDURE
     Dosage: 300ML IV BOLUS
     Route: 040

REACTIONS (1)
  - HALLUCINATION, TACTILE [None]
